FAERS Safety Report 5164502-5 (Version None)
Quarter: 2006Q4

REPORT INFORMATION
  Report Type: 
  Country: None (occurrence: None)
  Receive Date: 20061124
  Receipt Date: 20061113
  Transmission Date: 20070319
  Serious: Yes (Other)
  Sender: FDA-Public Use
  Company Number: 2006SP004126

PATIENT
  Age: 54 Year
  Sex: Male
  Weight: 112.4921 kg

DRUGS (3)
  1. PEG-INTRON [Suspect]
     Indication: HEPATITIS C
     Dosage: 150 MCG; SC
     Route: 058
     Dates: start: 20060516
  2. RIBAVIRIN [Suspect]
     Indication: HEPATITIS C
     Dosage: PO
     Route: 048
     Dates: start: 20060516
  3. HYDROCHLOROTHIAZIDE [Concomitant]

REACTIONS (7)
  - APPETITE DISORDER [None]
  - DIARRHOEA [None]
  - HAEMATOCHEZIA [None]
  - PEPTIC ULCER [None]
  - RECTAL HAEMORRHAGE [None]
  - VOMITING [None]
  - WEIGHT DECREASED [None]
